FAERS Safety Report 10031359 (Version 3)
Quarter: 2014Q4

REPORT INFORMATION
  Report Type: Spontaneous
  Country: JP (occurrence: JP)
  Receive Date: 20140324
  Receipt Date: 20141002
  Transmission Date: 20150528
  Serious: Yes (Life-Threatening, Hospitalization, Other)
  Sender: FDA-Public Use
  Company Number: JP-009507513-1403JPN008145

PATIENT
  Age: 43 Year
  Sex: Male

DRUGS (13)
  1. ALLOPURINOL. [Concomitant]
     Active Substance: ALLOPURINOL
     Indication: ALCOHOLISM
     Dosage: 100 MG, BID; TOTAL DAILY DOSE: 200MG
     Route: 048
  2. CALONAL [Concomitant]
     Active Substance: ACETAMINOPHEN
     Indication: ANALGESIC THERAPY
     Dosage: 400 MG, TID; TOTAL DAILY DOSE: 1200MG
     Route: 048
  3. LAMISIL (TERBINAFINE HYDROCHLORIDE) [Concomitant]
     Indication: TINEA INFECTION
     Dosage: 125 MG, QD; TOTAL DAILY DOSE: 125MG
     Route: 048
  4. REBETOL [Suspect]
     Active Substance: RIBAVIRIN
     Indication: CHRONIC HEPATITIS C
     Dosage: 800 MG, BID; TOTAL DAILY DOSE: 1600MG
     Route: 048
     Dates: start: 201310, end: 201403
  5. OLOPATADINE HYDROCHLORIDE. [Concomitant]
     Active Substance: OLOPATADINE HYDROCHLORIDE
     Indication: PRURITUS
     Dosage: 5 MG, QD; TOTAL DAILY DOSE: 5 MG
     Route: 048
  6. DIHYDROCODEINE PHOSPHATE [Concomitant]
     Active Substance: DIHYDROCODEINE PHOSPHATE
     Indication: COUGH
     Dosage: 20 MG, BID; TOTAL DAILY DOSE: 40MG
     Route: 048
  7. PARIET [Concomitant]
     Active Substance: RABEPRAZOLE SODIUM
     Indication: GASTROOESOPHAGEAL REFLUX DISEASE
     Dosage: 10 MG, QD; TOTAL DAILY DOSE: 10MG
     Route: 048
  8. FLUNITRAZEPAM [Concomitant]
     Active Substance: FLUNITRAZEPAM
     Indication: ALCOHOLISM
     Dosage: 2 MG, QD; TOTAL DAILY DOSE: 2MG
     Route: 048
  9. BENZALIN [Concomitant]
     Active Substance: NITRAZEPAM
     Indication: ALCOHOLISM
     Dosage: 10 MG, QD; TOTAL DAILY DOSE: 10MG
     Route: 048
  10. PEGINTRON [Suspect]
     Active Substance: PEGINTERFERON ALFA-2B
     Indication: CHRONIC HEPATITIS C
     Dosage: 100 MICROGRAM PER KILOGRAM, ONCE WEEKLY
     Route: 058
     Dates: start: 201310, end: 201403
  11. PEGINTRON [Suspect]
     Active Substance: PEGINTERFERON ALFA-2B
     Dosage: DAILY DOSAGE UNKNOWN
     Route: 058
  12. RISPERIDONE. [Concomitant]
     Active Substance: RISPERIDONE
     Indication: ALCOHOLISM
     Dosage: 2 MG, TID; TOTAL DAILY DOSE: 6 MG
     Route: 048
  13. LEVOTOMIN (LEVOMEPROMAZINE MALEATE) [Concomitant]
     Indication: ALCOHOLISM
     Dosage: 5 MG, QD; TOTAL DAILY DOSE: 5MG
     Route: 048

REACTIONS (1)
  - Guillain-Barre syndrome [Recovered/Resolved]

NARRATIVE: CASE EVENT DATE: 201402
